FAERS Safety Report 11685830 (Version 1)
Quarter: 2015Q4

REPORT INFORMATION
  Report Type: Other
  Country: IT (occurrence: IT)
  Receive Date: 20151030
  Receipt Date: 20151030
  Transmission Date: 20160304
  Serious: Yes (Other)
  Sender: FDA-Public Use
  Company Number: IT-MYLANLABS-2015M1035985

PATIENT

DRUGS (2)
  1. VECTIBIX [Concomitant]
     Active Substance: PANITUMUMAB
     Indication: PRODUCT USED FOR UNKNOWN INDICATION
     Dosage: 300 MG, UNK
  2. OXALIPLATINO [Suspect]
     Active Substance: OXALIPLATIN
     Indication: COLON CANCER
     Dosage: 130 MG, MONTHLY
     Route: 042
     Dates: start: 20150818

REACTIONS (4)
  - Hypotension [Unknown]
  - Retching [Unknown]
  - Hyperthermia [Unknown]
  - Nausea [Unknown]

NARRATIVE: CASE EVENT DATE: 20150818
